FAERS Safety Report 22124243 (Version 1)
Quarter: 2023Q1

REPORT INFORMATION
  Report Type: Spontaneous
  Country: AU (occurrence: None)
  Receive Date: 20230322
  Receipt Date: 20230322
  Transmission Date: 20230417
  Serious: Yes (Other)
  Sender: FDA-Public Use
  Company Number: 2023A062660

PATIENT
  Sex: Female

DRUGS (3)
  1. FULVESTRANT [Suspect]
     Active Substance: FULVESTRANT
  2. KISQALI [Suspect]
     Active Substance: RIBOCICLIB
  3. LETROZOLE [Suspect]
     Active Substance: LETROZOLE

REACTIONS (5)
  - Renal failure [Unknown]
  - Renal tubular necrosis [Unknown]
  - Dehydration [Unknown]
  - Nausea [Unknown]
  - Vomiting [Unknown]
